FAERS Safety Report 14876143 (Version 1)
Quarter: 2018Q2

REPORT INFORMATION
  Report Type: Spontaneous
  Country: US (occurrence: US)
  Receive Date: 20180510
  Receipt Date: 20180510
  Transmission Date: 20180711
  Serious: No
  Sender: FDA-Public Use
  Company Number: US-ELI_LILLY_AND_COMPANY-US201804007669

PATIENT
  Age: 58 Year
  Sex: Female

DRUGS (1)
  1. TALTZ [Suspect]
     Active Substance: IXEKIZUMAB
     Indication: PSORIATIC ARTHROPATHY
     Dosage: 80 MG, UNKNOWN
     Route: 058
     Dates: start: 20180303, end: 20180329

REACTIONS (6)
  - Erythema [Recovered/Resolved]
  - Dermatitis [Recovered/Resolved]
  - Injection site pain [Recovered/Resolved]
  - Pruritus [Recovered/Resolved]
  - Injection site erythema [Recovered/Resolved]
  - Injection site mass [Recovered/Resolved]
